FAERS Safety Report 8306408-6 (Version None)
Quarter: 2012Q2

REPORT INFORMATION
  Report Type: 
  Country: None (occurrence: None)
  Receive Date: 20120423
  Receipt Date: 20120409
  Transmission Date: 20120825
  Serious: Yes (Hospitalization, Other)
  Sender: FDA-Public Use
  Company Number: US-MYLANLABS-2009AC000030

PATIENT
  Age: 79 Year
  Sex: Female
  Weight: 72.58 kg

DRUGS (32)
  1. COUMADIN [Concomitant]
  2. DETROL [Concomitant]
  3. STOOL SOFTENER [Concomitant]
  4. CYANOCOBALAMIN [Concomitant]
  5. AZITHROMYCIN [Concomitant]
  6. SODIUM BICARBONATE [Concomitant]
  7. CIPROFLOXACIN [Concomitant]
  8. LASIX [Concomitant]
  9. PROPOXYPHENE HCL AND ACETAMINOPHEN [Concomitant]
  10. ACETAMINOPHEN AND HYDROCODONE BITARTRATE [Concomitant]
  11. PEPCID [Concomitant]
  12. DIGOXIN [Suspect]
     Indication: CARDIAC MURMUR
     Route: 048
     Dates: start: 20030719, end: 20070712
  13. COLACE [Concomitant]
  14. LEVOTHYROXINE SODIUM [Concomitant]
  15. CARVEDILOL [Concomitant]
  16. VICODIN [Concomitant]
  17. LACTULOSE [Concomitant]
  18. BENICAR [Concomitant]
  19. LOTREL [Concomitant]
  20. LOPRESSOR [Concomitant]
  21. SYNTHROID [Concomitant]
  22. TRIAMTERENE AND HYDROCHLOROTHIAZIDE [Concomitant]
  23. PHENERGAN HCL [Concomitant]
  24. COREG [Concomitant]
  25. PLAVIX [Concomitant]
  26. TRIGOSAMINE [Concomitant]
  27. CELEBREX [Concomitant]
  28. DOXYCYCLINE [Concomitant]
  29. FUROSEMIDE [Concomitant]
  30. ASPIRIN [Concomitant]
  31. MECLIZINE [Concomitant]
  32. ZOFRAN [Concomitant]

REACTIONS (63)
  - DIZZINESS [None]
  - PALPITATIONS [None]
  - DYSPNOEA [None]
  - URINE LEUKOCYTE ESTERASE POSITIVE [None]
  - CATHETERISATION CARDIAC ABNORMAL [None]
  - DIARRHOEA [None]
  - HEADACHE [None]
  - VASCULAR PSEUDOANEURYSM [None]
  - HYPOTENSION [None]
  - DEHYDRATION [None]
  - ABASIA [None]
  - RENAL DISORDER [None]
  - MALAISE [None]
  - NERVOUSNESS [None]
  - URINARY TRACT INFECTION [None]
  - THROMBOCYTOPENIA [None]
  - ABDOMINAL PAIN [None]
  - EPIGASTRIC DISCOMFORT [None]
  - LUNG HYPERINFLATION [None]
  - CARDIAC FAILURE CONGESTIVE [None]
  - VOMITING [None]
  - LEFT VENTRICULAR HYPERTROPHY [None]
  - ASTHENIA [None]
  - AZOTAEMIA [None]
  - COMPRESSION FRACTURE [None]
  - GLOMERULAR FILTRATION RATE DECREASED [None]
  - LUNG NEOPLASM [None]
  - HEART RATE IRREGULAR [None]
  - HYPERTENSION [None]
  - PRESYNCOPE [None]
  - TOXICITY TO VARIOUS AGENTS [None]
  - PERIPHERAL COLDNESS [None]
  - ATRIAL FIBRILLATION [None]
  - URINE LEUKOCYTE ESTERASE [None]
  - NAUSEA [None]
  - CARDIOMEGALY [None]
  - MULTIPLE MYELOMA [None]
  - ANKLE FRACTURE [None]
  - FACE INJURY [None]
  - JOINT DISLOCATION [None]
  - ANAEMIA [None]
  - GASTROENTERITIS [None]
  - CHEST PAIN [None]
  - COMPUTERISED TOMOGRAM ABNORMAL [None]
  - OSTEOPENIA [None]
  - TACHYCARDIA [None]
  - JOINT SWELLING [None]
  - ELECTROCARDIOGRAM ST SEGMENT DEPRESSION [None]
  - FACIAL BONES FRACTURE [None]
  - FALL [None]
  - RENAL FAILURE [None]
  - DYSURIA [None]
  - EPISTAXIS [None]
  - OEDEMA PERIPHERAL [None]
  - GAIT DISTURBANCE [None]
  - PAIN IN EXTREMITY [None]
  - CHEST DISCOMFORT [None]
  - BUNDLE BRANCH BLOCK LEFT [None]
  - ARTHRALGIA [None]
  - ELECTROCARDIOGRAM ABNORMAL [None]
  - JOINT RANGE OF MOTION DECREASED [None]
  - LIGAMENT SPRAIN [None]
  - VISION BLURRED [None]
